FAERS Safety Report 9231226 (Version 4)
Quarter: 2014Q4

REPORT INFORMATION
  Report Type: Spontaneous
  Country: US (occurrence: US)
  Receive Date: 20130415
  Receipt Date: 20141008
  Transmission Date: 20150529
  Serious: Yes (Hospitalization, Other)
  Sender: FDA-Public Use
  Company Number: US-BAYER-2013-045373

PATIENT
  Age: 29 Year
  Sex: Female
  Weight: 68.27 kg

DRUGS (3)
  1. CLARITIN [Concomitant]
     Active Substance: LORATADINE
     Indication: SINUS DISORDER
     Dosage: 1 TAB AS NEEDED
     Dates: start: 20110316
  2. MIRENA [Suspect]
     Active Substance: LEVONORGESTREL
     Indication: CONTRACEPTION
     Dosage: 20 MCG/24HR, CONT
     Route: 015
     Dates: start: 20110214, end: 20110330
  3. PRENATAL VITAMINS [Concomitant]
     Active Substance: VITAMINS
     Dosage: 1 TAB DAILY
     Dates: start: 20110329

REACTIONS (5)
  - Uterine perforation [None]
  - Device dislocation [None]
  - Medical device pain [None]
  - Injury [None]
  - Pain [None]

NARRATIVE: CASE EVENT DATE: 201102
